FAERS Safety Report 8928872 (Version 3)
Quarter: 2013Q2

REPORT INFORMATION
  Report Type: Spontaneous
  Country: US (occurrence: US)
  Receive Date: 20121127
  Receipt Date: 20130514
  Transmission Date: 20140414
  Serious: No
  Sender: FDA-Public Use
  Company Number: US-ASTRAZENECA-2012SE81716

PATIENT
  Age: 55 Year
  Sex: Male

DRUGS (5)
  1. NEXIUM [Suspect]
     Indication: GASTROOESOPHAGEAL REFLUX DISEASE
     Dosage: DAILY
     Route: 048
  2. SEROQUEL [Suspect]
     Indication: BIPOLAR I DISORDER
     Route: 048
  3. SEROQUEL [Suspect]
     Indication: BIPOLAR I DISORDER
     Route: 048
     Dates: start: 2011
  4. SEROQUEL [Suspect]
     Indication: BIPOLAR I DISORDER
     Route: 048
  5. LAMICTAL [Concomitant]
     Indication: DEPRESSION

REACTIONS (14)
  - Nasopharyngitis [Unknown]
  - Mental impairment [Unknown]
  - Malaise [Unknown]
  - Gastrooesophageal reflux disease [Unknown]
  - Abdominal discomfort [Unknown]
  - Insomnia [Unknown]
  - Impaired driving ability [Unknown]
  - Nerve injury [Unknown]
  - Confusional state [Unknown]
  - Carpal tunnel syndrome [Unknown]
  - Somnolence [Unknown]
  - Drug dose omission [Unknown]
  - Off label use [Unknown]
  - Off label use [Unknown]
